FAERS Safety Report 14895177 (Version 7)
Quarter: 2018Q3

REPORT INFORMATION
  Report Type: Spontaneous
  Country: US (occurrence: US)
  Receive Date: 20180515
  Receipt Date: 20180814
  Transmission Date: 20181010
  Serious: Yes (Hospitalization)
  Sender: FDA-Public Use
  Company Number: US-PFIZER INC-2018192909

PATIENT
  Age: 64 Year
  Sex: Female

DRUGS (7)
  1. BOSULIF [Suspect]
     Active Substance: BOSUTINIB MONOHYDRATE
     Dosage: 100 MG, 1X/DAY (QD)
     Route: 048
     Dates: start: 20180522
  2. ZOFRAN [Concomitant]
     Active Substance: ONDANSETRON HYDROCHLORIDE
     Dosage: UNK UNK, DAILY (EVERY DAY)
  3. BOSULIF [Suspect]
     Active Substance: BOSUTINIB MONOHYDRATE
     Dosage: 500 MG, 1X/DAY
     Route: 048
  4. BOSULIF [Suspect]
     Active Substance: BOSUTINIB MONOHYDRATE
     Dosage: 1 DF, DAILY
  5. BOSULIF [Suspect]
     Active Substance: BOSUTINIB MONOHYDRATE
     Dosage: 250 MG, DAILY (EVENING)
  6. ANAGRELIDE. [Concomitant]
     Active Substance: ANAGRELIDE HYDROCHLORIDE
     Indication: POLYCYTHAEMIA VERA
     Dosage: UNK
  7. BOSULIF [Suspect]
     Active Substance: BOSUTINIB MONOHYDRATE
     Dosage: 200 MG, UNK

REACTIONS (21)
  - White blood cell count increased [Unknown]
  - Influenza like illness [Unknown]
  - Blood creatinine increased [Unknown]
  - Weight decreased [Unknown]
  - Dysgeusia [Unknown]
  - Dehydration [Unknown]
  - Rash erythematous [Recovering/Resolving]
  - Platelet count abnormal [Unknown]
  - Arthralgia [Unknown]
  - Dyspnoea [Unknown]
  - Neck pain [Unknown]
  - Vomiting [Recovered/Resolved]
  - Asthma [Unknown]
  - Pyrexia [Unknown]
  - Diarrhoea [Recovered/Resolved]
  - Fatigue [Unknown]
  - Headache [Unknown]
  - Thermal burn [Unknown]
  - Ageusia [Unknown]
  - Rash [Recovering/Resolving]
  - Nausea [Recovering/Resolving]
